FAERS Safety Report 15970977 (Version 1)
Quarter: 2019Q1

REPORT INFORMATION
  Report Type: Spontaneous
  Country: US (occurrence: US)
  Receive Date: 20190215
  Receipt Date: 20190215
  Transmission Date: 20190418
  Serious: Yes (Other)
  Sender: FDA-Public Use
  Company Number: PHEH2019US006828

PATIENT
  Sex: Male

DRUGS (1)
  1. TASIGNA [Suspect]
     Active Substance: NILOTINIB
     Indication: CHRONIC MYELOID LEUKAEMIA
     Dosage: UNK UNK, BID
     Route: 065
     Dates: start: 20101101

REACTIONS (10)
  - Deafness [Unknown]
  - Coronary artery disease [Unknown]
  - Hypothyroidism [Unknown]
  - Erectile dysfunction [Unknown]
  - Sarcoidosis [Unknown]
  - Arteriosclerosis [Unknown]
  - Hyperlipidaemia [Unknown]
  - Mitral valve incompetence [Unknown]
  - Gastrooesophageal reflux disease [Unknown]
  - Benign prostatic hyperplasia [Unknown]
